FAERS Safety Report 17678695 (Version 2)
Quarter: 2022Q1

REPORT INFORMATION
  Report Type: Spontaneous
  Country: CA (occurrence: None)
  Receive Date: 20200417
  Receipt Date: 20220104
  Transmission Date: 20220423
  Serious: Yes (Other)
  Sender: FDA-Public Use
  Company Number: CA-ROCHE-2584080

PATIENT
  Age: 79 Year
  Sex: Female
  Weight: 64 kg

DRUGS (23)
  1. ESBRIET [Suspect]
     Active Substance: PIRFENIDONE
     Indication: Idiopathic pulmonary fibrosis
     Route: 048
  2. ESBRIET [Suspect]
     Active Substance: PIRFENIDONE
     Dosage: THERAPY DURATION : 9.0  DAYS
     Route: 065
  3. ESBRIET [Suspect]
     Active Substance: PIRFENIDONE
     Route: 065
  4. ESBRIET [Suspect]
     Active Substance: PIRFENIDONE
     Route: 065
  5. ESBRIET [Suspect]
     Active Substance: PIRFENIDONE
     Route: 065
  6. AMITRIPTYLINE [Concomitant]
     Active Substance: AMITRIPTYLINE
     Route: 048
  7. AZATHIOPRINE [Concomitant]
     Active Substance: AZATHIOPRINE
     Route: 065
  8. COLACE [Concomitant]
     Active Substance: DOCUSATE SODIUM
     Route: 065
  9. ELAVIL [Concomitant]
     Active Substance: AMITRIPTYLINE HYDROCHLORIDE
     Route: 048
  10. FLUVASTATIN [Concomitant]
     Active Substance: FLUVASTATIN SODIUM
     Route: 065
  11. FLUVASTATIN SODIUM [Concomitant]
     Active Substance: FLUVASTATIN SODIUM
  12. GLICLAZIDE [Concomitant]
     Active Substance: GLICLAZIDE
     Route: 048
  13. HYZAAR [Concomitant]
     Active Substance: HYDROCHLOROTHIAZIDE\LOSARTAN POTASSIUM
     Route: 048
  14. INSULIN NOS [Concomitant]
     Active Substance: INSULIN NOS
  15. JANUVIA [Concomitant]
     Active Substance: SITAGLIPTIN PHOSPHATE
  16. LACTULOSE [Concomitant]
     Active Substance: LACTULOSE
     Route: 065
  17. METFORMIN [Concomitant]
     Active Substance: METFORMIN HYDROCHLORIDE
  18. PREDNISONE [Concomitant]
     Active Substance: PREDNISONE
  19. RABEPRAZOLE [Concomitant]
     Active Substance: RABEPRAZOLE
  20. RAMIPRIL [Concomitant]
     Active Substance: RAMIPRIL
  21. SOFLAX (CANADA) [Concomitant]
  22. TERBUTALINE SULFATE [Concomitant]
     Active Substance: TERBUTALINE SULFATE
  23. TIAZAC (CANADA) [Concomitant]

REACTIONS (17)
  - Aortic arteriosclerosis [Not Recovered/Not Resolved]
  - Cholelithiasis [Not Recovered/Not Resolved]
  - Cough [Not Recovered/Not Resolved]
  - Decreased appetite [Not Recovered/Not Resolved]
  - Dizziness [Not Recovered/Not Resolved]
  - Fatigue [Not Recovered/Not Resolved]
  - Gastrooesophageal reflux disease [Not Recovered/Not Resolved]
  - Hepatic cyst [Not Recovered/Not Resolved]
  - Intervertebral disc degeneration [Not Recovered/Not Resolved]
  - Malaise [Not Recovered/Not Resolved]
  - Nausea [Not Recovered/Not Resolved]
  - Productive cough [Not Recovered/Not Resolved]
  - Pulmonary function test abnormal [Not Recovered/Not Resolved]
  - Renal cyst [Not Recovered/Not Resolved]
  - Vomiting [Not Recovered/Not Resolved]
  - Weight decreased [Not Recovered/Not Resolved]
  - Disorientation [Not Recovered/Not Resolved]
